FAERS Safety Report 9397897 (Version 2)
Quarter: 2013Q3

REPORT INFORMATION
  Report Type: Spontaneous
  Country: BR (occurrence: BR)
  Receive Date: 20130712
  Receipt Date: 20130712
  Transmission Date: 20140515
  Serious: Yes (Other)
  Sender: FDA-Public Use
  Company Number: BR-ASTRAZENECA-2013SE28984

PATIENT
  Age: 25416 Day
  Sex: Male
  Weight: 73 kg

DRUGS (10)
  1. SELOZOK [Suspect]
     Indication: CORONARY ARTERY OCCLUSION
     Route: 048
     Dates: start: 20130422, end: 201305
  2. OMEPRAZOLE (MEDLEY) [Suspect]
     Indication: DIVERTICULUM
     Route: 065
     Dates: start: 2010
  3. OMEPRAZOLE (MEDLEY) [Suspect]
     Indication: ABDOMINAL PAIN UPPER
     Route: 065
     Dates: start: 2010
  4. OMEPRAZOLE (MEDLEY) [Suspect]
     Indication: DIVERTICULUM
     Route: 065
     Dates: start: 2010
  5. OMEPRAZOLE (MEDLEY) [Suspect]
     Indication: ABDOMINAL PAIN UPPER
     Route: 065
     Dates: start: 2010
  6. ATORVASTATIN [Concomitant]
     Indication: CORONARY ARTERY OCCLUSION
     Dosage: DAILY
     Dates: start: 20130422
  7. ASA [Concomitant]
     Indication: CORONARY ARTERY OCCLUSION
     Dosage: DAILY
     Dates: start: 20130422
  8. MOTILIUM [Concomitant]
     Indication: DIVERTICULUM
     Dosage: DAILY
     Dates: start: 2010
  9. MOTILIUM [Concomitant]
     Indication: ABDOMINAL PAIN UPPER
     Dosage: DAILY
     Dates: start: 2010
  10. LACRIL [Concomitant]
     Indication: DRY EYE

REACTIONS (7)
  - Coronary artery occlusion [Not Recovered/Not Resolved]
  - Feeling hot [Recovered/Resolved]
  - Asthenia [Recovered/Resolved]
  - Dysgeusia [Recovered/Resolved]
  - Dizziness [Recovered/Resolved]
  - Blood pressure decreased [Recovered/Resolved]
  - Off label use [Recovered/Resolved]
